FAERS Safety Report 10268907 (Version 1)
Quarter: 2014Q2

REPORT INFORMATION
  Report Type: Spontaneous
  Country: US (occurrence: US)
  Receive Date: 20140630
  Receipt Date: 20140630
  Transmission Date: 20141212
  Serious: No
  Sender: FDA-Public Use
  Company Number: US-ASTRAZENECA-2014SE45724

PATIENT
  Age: 24 Year
  Sex: Female

DRUGS (2)
  1. SEROQUEL XR [Suspect]
     Indication: INSOMNIA
     Route: 048
  2. DUOXETINE [Concomitant]

REACTIONS (2)
  - Weight increased [Unknown]
  - Off label use [Unknown]
